FAERS Safety Report 6028811-X (Version None)
Quarter: 2009Q1

REPORT INFORMATION
  Report Type: 
  Country: None (occurrence: None)
  Receive Date: 20090106
  Receipt Date: 20081222
  Transmission Date: 20090719
  Serious: Yes (Disabling, Other)
  Sender: FDA-Public Use
  Company Number: GB-GENENTECH-274761

PATIENT
  Sex: Female

DRUGS (8)
  1. AVASTIN [Suspect]
     Indication: BREAST CANCER
     Dosage: UNK
     Route: 042
     Dates: start: 20080801, end: 20081101
  2. PACLITAXEL [Concomitant]
     Indication: BREAST CANCER
     Dosage: UNK
     Dates: start: 20080830, end: 20081101
  3. PACLITAXEL [Concomitant]
     Indication: METASTATIC NEOPLASM
  4. FUROSEMIDE [Suspect]
     Indication: HYPERTENSION
     Dosage: UNK
     Dates: start: 20080801, end: 20081101
  5. METOCLOPRAMIDE [Concomitant]
     Indication: DRUG USE FOR UNKNOWN INDICATION
  6. ACETAMINOPHEN W/ CODEINE [Concomitant]
     Indication: PAIN
  7. PARACETAMOL [Concomitant]
     Indication: PAIN
  8. IBUPROFEN TABLETS [Concomitant]
     Indication: PAIN

REACTIONS (3)
  - BLINDNESS [None]
  - HYPERTENSION [None]
  - VISION BLURRED [None]
